FAERS Safety Report 20479868 (Version 1)
Quarter: 2022Q1

REPORT INFORMATION
  Report Type: Spontaneous
  Country: FR (occurrence: FR)
  Receive Date: 20220216
  Receipt Date: 20220216
  Transmission Date: 20220423
  Serious: Yes (Death)
  Sender: FDA-Public Use
  Company Number: FR-JNJFOC-20220235995

PATIENT
  Sex: Male

DRUGS (14)
  1. TRAMADOL HYDROCHLORIDE [Suspect]
     Active Substance: TRAMADOL HYDROCHLORIDE
     Indication: Product used for unknown indication
     Dosage: 100 MILLIGRAM, 1/DAY
     Route: 064
     Dates: start: 20210808, end: 20210816
  2. CLAVULANIC ACID [Suspect]
     Active Substance: CLAVULANIC ACID
     Indication: Product used for unknown indication
     Dosage: 275 MILLIGRAM, 1/DAY
     Route: 064
     Dates: start: 20210816, end: 20210817
  3. CEFOTAXIME [Suspect]
     Active Substance: CEFOTAXIME SODIUM
     Indication: Product used for unknown indication
     Dosage: 3 GRAM, 1/DAY
     Route: 064
     Dates: start: 20210810, end: 20210815
  4. SERTACONAZOLE NITRATE [Suspect]
     Active Substance: SERTACONAZOLE NITRATE
     Indication: Product used for unknown indication
     Dosage: 1 DOSAGE FORM
     Route: 064
     Dates: start: 20210804, end: 20210804
  5. ENOXAPARIN SODIUM [Suspect]
     Active Substance: ENOXAPARIN SODIUM
     Indication: Product used for unknown indication
     Dosage: 4000 INTERNATIONAL UNIT, 1/DAY
     Route: 064
     Dates: start: 20210810, end: 20210816
  6. ACETAMINOPHEN [Suspect]
     Active Substance: ACETAMINOPHEN
     Indication: Product used for unknown indication
     Dosage: 4 GRAM, 1/DAY
     Route: 064
     Dates: start: 20210808, end: 20210816
  7. METRONIDAZOLE [Suspect]
     Active Substance: METRONIDAZOLE
     Indication: Product used for unknown indication
     Dosage: 3 GRAM, 1/DAY
     Route: 064
     Dates: start: 20210810, end: 20210815
  8. PANTOPRAZOLE [Suspect]
     Active Substance: PANTOPRAZOLE
     Indication: Product used for unknown indication
     Dosage: 20 MILLIGRAM, 1/DAY
     Route: 064
     Dates: start: 20210815, end: 20210816
  9. AMOXICILLIN [Suspect]
     Active Substance: AMOXICILLIN
     Indication: Product used for unknown indication
     Dosage: 3 GRAM, 1/DAY
     Route: 064
     Dates: start: 20210816, end: 20210817
  10. LEVOTHYROXINE [Suspect]
     Active Substance: LEVOTHYROXINE
     Indication: Product used for unknown indication
     Dosage: 50 MICROGRAM, 1/DAY
     Route: 064
     Dates: start: 20210505, end: 20211019
  11. PHLOROGLUCINOL [Suspect]
     Active Substance: PHLOROGLUCINOL
     Indication: Product used for unknown indication
     Dosage: 240 MILLIGRAM, 1/DAY
     Route: 064
     Dates: start: 20210808, end: 20210816
  12. NEFOPAM HYDROCHLORIDE [Suspect]
     Active Substance: NEFOPAM HYDROCHLORIDE
     Indication: Product used for unknown indication
     Dosage: 80 MILLIGRAM, 1/DAY
     Route: 064
     Dates: start: 20210810, end: 20210813
  13. ONDANSETRON HYDROCHLORIDE [Suspect]
     Active Substance: ONDANSETRON HYDROCHLORIDE
     Indication: Product used for unknown indication
     Dosage: 16 MILLIGRAM, 1/DAY
     Route: 064
     Dates: start: 20210810, end: 20210815
  14. ROPIVACAINE HYDROCHLORIDE [Suspect]
     Active Substance: ROPIVACAINE HYDROCHLORIDE
     Indication: Product used for unknown indication
     Dosage: 20 MILLILITRE
     Route: 064
     Dates: start: 20210810, end: 20210810

REACTIONS (2)
  - Urethral valves [Fatal]
  - Foetal exposure during pregnancy [Unknown]

NARRATIVE: CASE EVENT DATE: 20210929
